FAERS Safety Report 8837882 (Version 3)
Quarter: 2014Q3

REPORT INFORMATION
  Report Type: Spontaneous
  Country: US (occurrence: US)
  Receive Date: 20121012
  Receipt Date: 20140710
  Transmission Date: 20150326
  Serious: Yes (Hospitalization)
  Sender: FDA-Public Use
  Company Number: US-BAYER-2012-104410

PATIENT
  Age: 45 Year
  Sex: Female

DRUGS (4)
  1. YAZ [Suspect]
     Active Substance: DROSPIRENONE\ETHINYL ESTRADIOL
     Indication: CONTRACEPTION
     Dosage: UNK
     Dates: start: 20110713, end: 20120717
  2. GIANVI [Suspect]
     Active Substance: DROSPIRENONE\ETHINYL ESTRADIOL
     Indication: CONTRACEPTION
     Dosage: UNK
     Dates: start: 20110713, end: 20120717
  3. MOTRIN [Concomitant]
     Active Substance: IBUPROFEN
  4. YASMIN [Suspect]
     Active Substance: DROSPIRENONE\ETHINYL ESTRADIOL
     Indication: CONTRACEPTION
     Dosage: UNK
     Dates: start: 20110713, end: 20120717

REACTIONS (8)
  - Pain in extremity [None]
  - Heart rate increased [None]
  - Musculoskeletal chest pain [None]
  - Deep vein thrombosis [None]
  - Pulmonary embolism [None]
  - Fatigue [None]
  - Dyspnoea [None]
  - Haemoptysis [None]

NARRATIVE: CASE EVENT DATE: 20120717
